FAERS Safety Report 9129406 (Version 1)
Quarter: 2013Q1

REPORT INFORMATION
  Report Type: Report from Study
  Country: US (occurrence: US)
  Receive Date: 20130228
  Receipt Date: 20130228
  Transmission Date: 20140127
  Serious: Yes (Other)
  Sender: FDA-Public Use
  Company Number: US-JNJFOC-20130213342

PATIENT
  Sex: Female

DRUGS (2)
  1. REMICADE [Suspect]
     Indication: CROHN^S DISEASE
     Dosage: STARTED AT THE AGE OF 17.
     Route: 065
  2. IMURAN [Concomitant]

REACTIONS (4)
  - Coeliac disease [Unknown]
  - Arthritis [Unknown]
  - Psoriasis [Unknown]
  - Drug specific antibody present [Unknown]
